FAERS Safety Report 12130340 (Version 1)
Quarter: 2016Q1

REPORT INFORMATION
  Report Type: Spontaneous
  Country: US (occurrence: None)
  Receive Date: 20160229
  Receipt Date: 20160229
  Transmission Date: 20160526
  Serious: Yes (Disabling)
  Sender: FDA-Public Use
  Company Number: None

PATIENT
  Sex: Female

DRUGS (1)
  1. RADIOACTIVE IODINE [Suspect]
     Active Substance: SODIUM IODIDE I-131

REACTIONS (10)
  - Weight increased [None]
  - Premature menopause [None]
  - Fatigue [None]
  - Swollen tongue [None]
  - Sleep apnoea syndrome [None]
  - Anxiety [None]
  - Asthma [None]
  - Depression [None]
  - Gastrooesophageal reflux disease [None]
  - Paraesthesia [None]
